FAERS Safety Report 21501706 (Version 1)
Quarter: 2022Q4

REPORT INFORMATION
  Report Type: Spontaneous
  Country: FR (occurrence: FR)
  Receive Date: 20221025
  Receipt Date: 20221025
  Transmission Date: 20230112
  Serious: Yes (Death, Hospitalization)
  Sender: FDA-Public Use
  Company Number: FR-ROCHE-671186

PATIENT
  Age: 30 Year
  Sex: Female

DRUGS (10)
  1. ETRAVIRINE [Suspect]
     Active Substance: ETRAVIRINE
     Indication: HIV infection
     Dosage: NAME RPTD AS ^INTELENCE^
     Route: 048
     Dates: end: 20090729
  2. DOXORUBICIN [Suspect]
     Active Substance: DOXORUBICIN
     Indication: Non-Hodgkin^s lymphoma
     Route: 042
     Dates: start: 20090323, end: 20090710
  3. MABTHERA [Suspect]
     Active Substance: RITUXIMAB
     Indication: Non-Hodgkin^s lymphoma
     Route: 041
     Dates: start: 20090323, end: 20090710
  4. TRUVADA [Suspect]
     Active Substance: EMTRICITABINE\TENOFOVIR DISOPROXIL FUMARATE
     Indication: HIV infection
     Dosage: STRENTGH: 200MG/245MG
     Route: 048
     Dates: end: 20090729
  5. FLUCONAZOLE [Suspect]
     Active Substance: FLUCONAZOLE
     Indication: Meningitis cryptococcal
     Route: 048
     Dates: start: 20090716, end: 20090729
  6. VINCRISTINE [Suspect]
     Active Substance: VINCRISTINE
     Indication: Non-Hodgkin^s lymphoma
     Route: 042
     Dates: start: 20090323, end: 20090710
  7. CANCIDAS [Concomitant]
     Active Substance: CASPOFUNGIN ACETATE
     Dates: start: 20090713, end: 20090713
  8. NEULASTA [Concomitant]
     Active Substance: PEGFILGRASTIM
     Dates: start: 20090716
  9. CYCLOPHOSPHAMIDE [Concomitant]
     Active Substance: CYCLOPHOSPHAMIDE
     Indication: Non-Hodgkin^s lymphoma
  10. PREDNISONE [Concomitant]
     Active Substance: PREDNISONE
     Indication: Non-Hodgkin^s lymphoma

REACTIONS (4)
  - Cryptococcosis [Unknown]
  - Cardio-respiratory arrest [Fatal]
  - Off label use [Unknown]
  - Torsade de pointes [Fatal]

NARRATIVE: CASE EVENT DATE: 20090323
